FAERS Safety Report 9909108 (Version 1)
Quarter: 2014Q1

REPORT INFORMATION
  Report Type: Spontaneous
  Country: DE (occurrence: DE)
  Receive Date: 20140219
  Receipt Date: 20140219
  Transmission Date: 20141002
  Serious: Yes (Other)
  Sender: FDA-Public Use
  Company Number: DE-PFIZER INC-2014043913

PATIENT
  Age: 56 Year
  Sex: Female

DRUGS (2)
  1. CLIMOPAX [Suspect]
     Indication: HORMONE REPLACEMENT THERAPY
     Dosage: 1.25 MG, UNK
     Dates: start: 2004
  2. CLIMOPAX [Suspect]
     Dosage: 1.25 MG, EVERY OTHER DAY
     Dates: start: 2013

REACTIONS (2)
  - Vaginal polyp [Unknown]
  - Back pain [Unknown]
